APPROVED DRUG PRODUCT: TESTOSTERONE
Active Ingredient: TESTOSTERONE
Strength: 50MG/5GM PACKET
Dosage Form/Route: GEL;TRANSDERMAL
Application: A076744 | Product #002 | TE Code: AB1
Applicant: STRIDES PHARMA INTERNATIONAL AG
Approved: May 23, 2007 | RLD: No | RS: No | Type: RX